FAERS Safety Report 8238326-6 (Version None)
Quarter: 2012Q1

REPORT INFORMATION
  Report Type: 
  Country: None (occurrence: None)
  Receive Date: 20120327
  Receipt Date: 20120323
  Transmission Date: 20120608
  Serious: Yes (Hospitalization)
  Sender: FDA-Public Use
  Company Number: JP-EISAI INC-E2020-10363-SPO-JP

PATIENT
  Sex: Female

DRUGS (4)
  1. CEROCRAL [Concomitant]
     Route: 048
  2. ARICEPT [Suspect]
     Indication: DEMENTIA ALZHEIMER'S TYPE
     Route: 048
     Dates: start: 20120215, end: 20120217
  3. NORVASC [Concomitant]
     Route: 048
  4. PRAVASTATIN SODIUM [Concomitant]
     Route: 048

REACTIONS (2)
  - SICK SINUS SYNDROME [None]
  - PNEUMONIA ASPIRATION [None]
